FAERS Safety Report 14365992 (Version 2)
Quarter: 2018Q1

REPORT INFORMATION
  Report Type: Spontaneous
  Country: JP (occurrence: JP)
  Receive Date: 20180109
  Receipt Date: 20180118
  Transmission Date: 20180509
  Serious: Yes (Other)
  Sender: FDA-Public Use
  Company Number: JP-TEVA-2017-JP-842310

PATIENT
  Age: 56 Year
  Sex: Male

DRUGS (2)
  1. HEPARIN [Suspect]
     Active Substance: HEPARIN SODIUM
     Indication: DEEP VEIN THROMBOSIS
     Route: 065
  2. UROKINASE [Suspect]
     Active Substance: UROKINASE
     Indication: DEEP VEIN THROMBOSIS
     Dosage: 240000 IU (INTERNATIONAL UNIT) DAILY;
     Route: 065

REACTIONS (2)
  - Haematuria [Unknown]
  - Haemolysis [Unknown]
